FAERS Safety Report 6210976-8 (Version None)
Quarter: 2009Q2

REPORT INFORMATION
  Report Type: 
  Country: None (occurrence: None)
  Receive Date: 20090528
  Receipt Date: 20090528
  Transmission Date: 20091009
  Serious: Yes (Other)
  Sender: FDA-Public Use
  Company Number: None

PATIENT
  Age: 56 Year
  Sex: Female
  Weight: 88.4514 kg

DRUGS (1)
  1. ALENDRONATE 35MG TEVA PHARMACEUTICALS USA [Suspect]
     Indication: OSTEOPENIA
     Dosage: 35MG ONCE A WEEK WEEKLY PO
     Route: 048
     Dates: start: 20090425, end: 20090515

REACTIONS (3)
  - ARTHRALGIA [None]
  - BACK PAIN [None]
  - MUSCLE SPASMS [None]
